FAERS Safety Report 6485184-6 (Version None)
Quarter: 2009Q4

REPORT INFORMATION
  Report Type: 
  Country: None (occurrence: None)
  Receive Date: 20091209
  Receipt Date: 20090708
  Transmission Date: 20100525
  Serious: No
  Sender: FDA-Public Use
  Company Number: US-AMGEN-KDL351632

PATIENT
  Sex: Female
  Weight: 65.4 kg

DRUGS (4)
  1. ENBREL [Suspect]
     Indication: JUVENILE ARTHRITIS
     Route: 058
     Dates: start: 20090602
  2. HYDROCODONE [Concomitant]
     Dates: start: 20080901, end: 20090301
  3. ASPIRIN [Concomitant]
  4. IBUPROFEN [Concomitant]

REACTIONS (3)
  - PAIN [None]
  - PETECHIAE [None]
  - PRURITUS [None]
